APPROVED DRUG PRODUCT: RANOLAZINE
Active Ingredient: RANOLAZINE
Strength: 500MG
Dosage Form/Route: TABLET, EXTENDED RELEASE;ORAL
Application: A212788 | Product #001 | TE Code: AB
Applicant: HETERO LABS LTD UNIT III
Approved: May 5, 2022 | RLD: No | RS: No | Type: RX